FAERS Safety Report 5285959-5 (Version None)
Quarter: 2007Q2

REPORT INFORMATION
  Report Type: 
  Country: None (occurrence: None)
  Receive Date: 20070404
  Receipt Date: 20070326
  Transmission Date: 20071010
  Serious: Yes (Life-Threatening, Other)
  Sender: FDA-Public Use
  Company Number: FR-BAYER-200510833BFR

PATIENT
  Age: 52 Year
  Sex: Male

DRUGS (13)
  1. CIPROFLOXACIN HCL [Suspect]
     Indication: UNEVALUABLE EVENT
     Route: 048
     Dates: start: 20050925, end: 20050930
  2. IMOVANE [Suspect]
     Indication: UNEVALUABLE EVENT
     Dosage: TOTAL DAILY DOSE: 7.5 MG
     Route: 048
     Dates: start: 20050101, end: 20050801
  3. IMOVANE [Suspect]
     Dosage: TOTAL DAILY DOSE: 7.5 MG
     Route: 048
     Dates: start: 20050922, end: 20051003
  4. LAMICTAL [Suspect]
     Indication: TRAUMATIC BRAIN INJURY
     Route: 048
     Dates: start: 20050901, end: 20050913
  5. LAMICTAL [Suspect]
     Route: 048
     Dates: start: 20050907, end: 20050901
  6. LAMICTAL [Suspect]
     Route: 048
     Dates: start: 20050901, end: 20050901
  7. LAMICTAL [Suspect]
     Route: 048
     Dates: start: 20050913, end: 20051003
  8. DEPAKENE [Suspect]
     Indication: TRAUMATIC BRAIN INJURY
     Dosage: TOTAL DAILY DOSE: 2000 MG  UNIT DOSE: 500 MG
     Route: 048
     Dates: end: 20050911
  9. STABLON [Suspect]
     Indication: UNEVALUABLE EVENT
     Route: 048
  10. XENETIX [Suspect]
     Indication: PROPHYLAXIS
     Dates: start: 20050920, end: 20050920
  11. XENETIX [Suspect]
     Dates: start: 20051003, end: 20051003
  12. FOSAMAX [Concomitant]
     Indication: UNEVALUABLE EVENT
     Route: 048
  13. OROCAL D3 [Concomitant]
     Indication: UNEVALUABLE EVENT
     Route: 048

REACTIONS (9)
  - CHILLS [None]
  - CONVULSION [None]
  - COUGH [None]
  - DRUG ERUPTION [None]
  - EOSINOPHILIA [None]
  - LIP OEDEMA [None]
  - PRURITUS [None]
  - PYREXIA [None]
  - RASH MORBILLIFORM [None]
